FAERS Safety Report 16114760 (Version 1)
Quarter: 2019Q1

REPORT INFORMATION
  Report Type: Spontaneous
  Country: US (occurrence: US)
  Receive Date: 20190325
  Receipt Date: 20190325
  Transmission Date: 20190418
  Serious: No
  Sender: FDA-Public Use
  Company Number: US-ASTRAZENECA-2019SE32166

PATIENT
  Age: 866 Month
  Sex: Female

DRUGS (1)
  1. BYDUREON [Suspect]
     Active Substance: EXENATIDE
     Indication: TYPE 2 DIABETES MELLITUS
     Route: 058
     Dates: start: 201901, end: 20190211

REACTIONS (10)
  - Nausea [Recovered/Resolved]
  - Weight increased [Recovering/Resolving]
  - Tongue biting [Recovering/Resolving]
  - Abdominal discomfort [Recovered/Resolved]
  - Injection site mass [Recovering/Resolving]
  - Peripheral swelling [Recovered/Resolved]
  - Glossitis [Recovering/Resolving]
  - Blood glucose increased [Unknown]
  - Sinusitis [Recovering/Resolving]
  - Swelling face [Recovering/Resolving]

NARRATIVE: CASE EVENT DATE: 201901
